FAERS Safety Report 9439806 (Version 3)
Quarter: 2013Q3

REPORT INFORMATION
  Report Type: Spontaneous
  Country: US (occurrence: US)
  Receive Date: 20130805
  Receipt Date: 20130913
  Transmission Date: 20140515
  Serious: No
  Sender: FDA-Public Use
  Company Number: US-PFIZER INC-2013225113

PATIENT
  Age: 45 Year
  Sex: Female
  Weight: 65.76 kg

DRUGS (4)
  1. ALAVERT D-12 HOUR ALLERGY + SINUS [Suspect]
     Indication: SINUS DISORDER
     Dosage: UNK, AS NEEDED
     Dates: end: 2013
  2. ALAVERT D-12 HOUR ALLERGY + SINUS [Suspect]
     Indication: HYPERSENSITIVITY
  3. ALAVERT D-12 HOUR ALLERGY + SINUS [Suspect]
     Indication: NASOPHARYNGITIS
  4. CHLOR-TRIMETON [Concomitant]
     Indication: NASAL DECONGESTION THERAPY
     Dosage: UNK, AS NEEDED

REACTIONS (3)
  - Poor quality drug administered [Recovered/Resolved]
  - Burning sensation [Recovered/Resolved]
  - Product taste abnormal [Recovered/Resolved]
